FAERS Safety Report 13745099 (Version 1)
Quarter: 2017Q3

REPORT INFORMATION
  Report Type: Spontaneous
  Country: US (occurrence: US)
  Receive Date: 20170711
  Receipt Date: 20170711
  Transmission Date: 20171127
  Serious: Yes (Other)
  Sender: FDA-Public Use
  Company Number: None

PATIENT
  Age: 58 Year
  Sex: Female
  Weight: 63 kg

DRUGS (1)
  1. BUPRENORPHINE/NALOXONE SL TABLET [Suspect]
     Active Substance: BUPRENORPHINE HYDROCHLORIDE\NALOXONE HYDROCHLORIDE
     Indication: DRUG USE DISORDER
     Dosage: ?          OTHER DOSE:MG/KG;?
     Route: 060
     Dates: start: 20170308, end: 20170412

REACTIONS (3)
  - Rash [None]
  - Tongue disorder [None]
  - Tongue blistering [None]

NARRATIVE: CASE EVENT DATE: 20170309
